FAERS Safety Report 23086264 (Version 2)
Quarter: 2023Q4

REPORT INFORMATION
  Report Type: Spontaneous
  Country: US (occurrence: US)
  Receive Date: 20231019
  Receipt Date: 20231221
  Transmission Date: 20240109
  Serious: Yes (Hospitalization, Other)
  Sender: FDA-Public Use
  Company Number: US-MALLINCKRODT-MNK202305016

PATIENT
  Age: 61 Year
  Sex: Female

DRUGS (4)
  1. CORTICOTROPIN [Suspect]
     Active Substance: CORTICOTROPIN
     Indication: Rheumatoid arthritis
     Route: 058
     Dates: start: 202207
  2. CORTICOTROPIN [Suspect]
     Active Substance: CORTICOTROPIN
     Indication: Rheumatoid arthritis
     Dosage: 0.5 (UNK)
  3. CORTICOSTEROID NOS [Suspect]
     Active Substance: CORTICOSTEROID NOS
     Indication: Product used for unknown indication
     Dosage: UNKNOWN
  4. HUMAN IMMUNOGLOBULIN G [Concomitant]
     Active Substance: HUMAN IMMUNOGLOBULIN G
     Indication: Product used for unknown indication
     Dosage: UNKNOWN

REACTIONS (16)
  - Rheumatoid arthritis [Recovering/Resolving]
  - Eye contusion [Unknown]
  - Fall [Not Recovered/Not Resolved]
  - Shoulder fracture [Unknown]
  - Fluid retention [Not Recovered/Not Resolved]
  - Blood pressure increased [Unknown]
  - Blood potassium decreased [Unknown]
  - Dizziness [Unknown]
  - Balance disorder [Unknown]
  - Skin hyperpigmentation [Not Recovered/Not Resolved]
  - Contusion [Unknown]
  - Illness [Unknown]
  - Weight increased [Unknown]
  - Acne [Unknown]
  - Rash [Unknown]
  - Swelling face [Unknown]

NARRATIVE: CASE EVENT DATE: 20230101
